FAERS Safety Report 8053086-X (Version None)
Quarter: 2012Q1

REPORT INFORMATION
  Report Type: 
  Country: None (occurrence: None)
  Receive Date: 20120112
  Receipt Date: 20120112
  Transmission Date: 20120608
  Serious: Yes (Death)
  Sender: FDA-Public Use
  Company Number: None

PATIENT
  Age: 46 Year
  Sex: Female
  Weight: 41.3 kg

DRUGS (14)
  1. ACYCLOVIR [Concomitant]
  2. CHLORHEXIDINE MOUTHWASH [Concomitant]
  3. COMPAZINE [Concomitant]
  4. FENTANYL [Concomitant]
  5. NYSTATIN SWISH AND SWALLOW [Concomitant]
  6. PKC412 MIDOSTAURIN [Suspect]
     Indication: ACUTE MYELOID LEUKAEMIA
     Dosage: 50MG BID
     Dates: start: 20111109, end: 20111214
  7. MARINOL [Concomitant]
  8. ATIVAN [Concomitant]
  9. LEVAQUIN [Concomitant]
  10. MAGNESIUM OXIDE [Concomitant]
  11. HYDROXYUREA [Concomitant]
  12. RAD001 EVEROLIMUS [Suspect]
     Indication: ACUTE MYELOID LEUKAEMIA
     Dosage: 5MG QOD
     Dates: start: 20111108, end: 20111214
  13. LIDOCAINE HCL VISCOUS [Concomitant]
  14. HYDROMORPHONE HC1 [Concomitant]

REACTIONS (2)
  - NEOPLASM PROGRESSION [None]
  - ACUTE MYELOID LEUKAEMIA RECURRENT [None]
